FAERS Safety Report 24231793 (Version 1)
Quarter: 2024Q3

REPORT INFORMATION
  Report Type: Spontaneous
  Country: BR (occurrence: BR)
  Receive Date: 20240821
  Receipt Date: 20240821
  Transmission Date: 20241016
  Serious: Yes (Other)
  Sender: BAXTER
  Company Number: BR-BAXTER-2024BAX022600

PATIENT
  Age: 14 Year
  Sex: Female
  Weight: 41.3 kg

DRUGS (5)
  1. IRON [Suspect]
     Active Substance: IRON
     Indication: Iron deficiency anaemia
     Dosage: 200 MG PER WEEK DURING 4 WEEKS, DILUTION CARRIED OUT IN 250 ML OF 0.9% SALINE SOLUTION
     Route: 042
     Dates: start: 20240613, end: 20240627
  2. SODIUM CHLORIDE [Suspect]
     Active Substance: SODIUM CHLORIDE
     Indication: Medication dilution
     Dosage: 250 ML OF 0.9% SALINE SOLUTION USED TO DILUTE 200 MG SUCROFER PER WEEK DURING 4 WEEKS
     Route: 042
     Dates: start: 20240613, end: 20240627
  3. PROGESTERONE [Suspect]
     Active Substance: PROGESTERONE
     Indication: Shortened cervix
     Dosage: 200 MG PER DAY
     Route: 048
     Dates: start: 20240613
  4. SCOPOLAMINE [Suspect]
     Active Substance: SCOPOLAMINE
     Indication: Abdominal pain
     Dosage: UNK
     Route: 048
     Dates: start: 20240613
  5. VITAMIN D [Suspect]
     Active Substance: VITAMIN D NOS
     Indication: Vitamin D deficiency
     Dosage: 4000 IU PER DAY
     Route: 048
     Dates: start: 20240613

REACTIONS (8)
  - Lip oedema [Recovered/Resolved]
  - Vomiting [Recovered/Resolved]
  - Nausea [Recovered/Resolved]
  - Dyspnoea [Recovered/Resolved]
  - Painful respiration [Recovered/Resolved]
  - Product administration error [Unknown]
  - Exposure during pregnancy [Unknown]
  - Malaise [Recovered/Resolved]

NARRATIVE: CASE EVENT DATE: 20240613
